FAERS Safety Report 10364567 (Version 1)
Quarter: 2014Q3

REPORT INFORMATION
  Report Type: Spontaneous
  Country: US (occurrence: None)
  Receive Date: 20140804
  Receipt Date: 20140804
  Transmission Date: 20150326
  Serious: Yes (Life-Threatening)
  Sender: FDA-Public Use
  Company Number: None

PATIENT
  Age: 43 Year
  Sex: Male
  Weight: 136.08 kg

DRUGS (1)
  1. LINZESS [Suspect]
     Active Substance: LINACLOTIDE
     Indication: GASTROINTESTINAL DISORDER
     Route: 048

REACTIONS (5)
  - Mental disorder [None]
  - Nightmare [None]
  - Condition aggravated [None]
  - Psychotic disorder [None]
  - Suicidal ideation [None]

NARRATIVE: CASE EVENT DATE: 20140731
